FAERS Safety Report 7369988-3 (Version None)
Quarter: 2011Q1

REPORT INFORMATION
  Report Type: 
  Country: None (occurrence: None)
  Receive Date: 20110323
  Receipt Date: 20110309
  Transmission Date: 20110831
  Serious: Yes (Hospitalization)
  Sender: FDA-Public Use
  Company Number: PHHY2010MX47377

PATIENT
  Age: 75 Year
  Sex: Female

DRUGS (7)
  1. ACLASTA [Suspect]
     Indication: OSTEOPOROSIS
     Dosage: 5 MG / 100 ML/ YEAR
     Route: 042
     Dates: start: 20080301
  2. PIOGLITAZONE [Concomitant]
     Dosage: 1 TABLET DAILY
     Route: 048
     Dates: start: 20090701
  3. INSULIN [Concomitant]
     Dosage: 10 UNITS PER DAY
     Dates: start: 20090701
  4. LOSARTAN POTASSIUM [Concomitant]
     Dosage: 2 TABLET DAILY
     Route: 048
     Dates: start: 20090701
  5. METFORMIN HCL [Concomitant]
     Dosage: 1 TABLET DAILY
     Route: 048
     Dates: start: 20090701
  6. AMLODIPINE [Concomitant]
     Dosage: 2 TABLET DAILY
     Route: 048
     Dates: start: 20090701
  7. METOPROLOL [Concomitant]
     Dosage: 2 TABLET DAILY
     Route: 048

REACTIONS (4)
  - FALL [None]
  - LUMBAR VERTEBRAL FRACTURE [None]
  - THORACIC VERTEBRAL FRACTURE [None]
  - BEDRIDDEN [None]
